FAERS Safety Report 7560674-3 (Version None)
Quarter: 2011Q2

REPORT INFORMATION
  Report Type: 
  Country: None (occurrence: None)
  Receive Date: 20110617
  Receipt Date: 20110617
  Transmission Date: 20111010
  Serious: Yes (Death, Life-Threatening, Hospitalization, Disabling, Other)
  Sender: FDA-Public Use
  Company Number: None

PATIENT
  Sex: Male
  Weight: 78.0187 kg

DRUGS (1)
  1. AMIODARONE HCL [Suspect]
     Indication: ATRIAL FIBRILLATION
     Dosage: 200 MG TOTAL 800MG DAILY 4X DAILY
     Dates: start: 20100310

REACTIONS (8)
  - CEREBROVASCULAR ACCIDENT [None]
  - THROMBOTIC THROMBOCYTOPENIC PURPURA [None]
  - DIALYSIS [None]
  - NO THERAPEUTIC RESPONSE [None]
  - ORGANISING PNEUMONIA [None]
  - LUNG DISORDER [None]
  - HEMIPLEGIA [None]
  - RENAL DISORDER [None]
